FAERS Safety Report 16368539 (Version 1)
Quarter: 2019Q2

REPORT INFORMATION
  Report Type: Spontaneous
  Country: AU (occurrence: AU)
  Receive Date: 20190529
  Receipt Date: 20190529
  Transmission Date: 20190711
  Serious: Yes (Other)
  Sender: FDA-Public Use
  Company Number: AU-009507513-1905AUS011906

PATIENT
  Age: 72 Year
  Sex: Female

DRUGS (13)
  1. ACETAMINOPHEN (+) TRAMADOL HYDROCHLORIDE [Concomitant]
     Active Substance: ACETAMINOPHEN\TRAMADOL HYDROCHLORIDE
     Dosage: UNK
  2. PROLIA [Suspect]
     Active Substance: DENOSUMAB
     Indication: OSTEOPOROSIS
     Dosage: 60 MILLIGRAM, INTERVAL: 1 CYCLICAL
     Route: 058
  3. SERETIDE [Concomitant]
     Active Substance: FLUTICASONE PROPIONATE\SALMETEROL XINAFOATE
     Dosage: UNK
  4. TEMAZE [Concomitant]
     Active Substance: TEMAZEPAM
     Dosage: UNK
  5. OLMETEC [Concomitant]
     Active Substance: OLMESARTAN MEDOXOMIL
     Dosage: UNK
  6. SPIRIVA [Concomitant]
     Active Substance: TIOTROPIUM BROMIDE MONOHYDRATE
     Dosage: UNK
  7. VENTOLIN [Concomitant]
     Active Substance: ALBUTEROL SULFATE
     Dosage: UNK
  8. FOSAMAX [Suspect]
     Active Substance: ALENDRONATE SODIUM
     Dosage: UNK
  9. PLAVIX [Concomitant]
     Active Substance: CLOPIDOGREL BISULFATE
     Dosage: UNK
  10. IMDUR [Concomitant]
     Active Substance: ISOSORBIDE MONONITRATE
     Dosage: UNK
  11. MALTOFER (IRON POLYMALTOSE) [Concomitant]
     Active Substance: IRON POLYMALTOSE
  12. ZANIDIP [Concomitant]
     Active Substance: LERCANIDIPINE HYDROCHLORIDE
     Dosage: UNK
  13. PREDNISOLONE. [Concomitant]
     Active Substance: PREDNISOLONE

REACTIONS (7)
  - Myopathy [Unknown]
  - Atypical femur fracture [Unknown]
  - Oral candidiasis [Unknown]
  - Infective exacerbation of chronic obstructive airways disease [Unknown]
  - Gastritis [Unknown]
  - Fall [Unknown]
  - Foot fracture [Unknown]

NARRATIVE: CASE EVENT DATE: 20151103
